FAERS Safety Report 7795620-0 (Version None)
Quarter: 2011Q4

REPORT INFORMATION
  Report Type: 
  Country: None (occurrence: None)
  Receive Date: 20111004
  Receipt Date: 20110928
  Transmission Date: 20120403
  Serious: Yes (Other)
  Sender: FDA-Public Use
  Company Number: CA-GLAXOSMITHKLINE-A0946373A

PATIENT
  Sex: Female

DRUGS (6)
  1. XELODA [Concomitant]
     Dosage: 1650MG TWICE PER DAY
     Route: 048
  2. TYKERB [Suspect]
     Indication: BREAST CANCER METASTATIC
     Dosage: 1250MG PER DAY
     Route: 048
     Dates: start: 20110202
  3. ALENDRONATE SODIUM [Concomitant]
  4. GLAUCOMA EYE DROPS (UNSPECIFIED) [Concomitant]
  5. VITAMIN D + CALCIUM [Concomitant]
  6. FEMARA [Concomitant]

REACTIONS (1)
  - BREAST CANCER METASTATIC [None]
